FAERS Safety Report 20010419 (Version 1)
Quarter: 2021Q4

REPORT INFORMATION
  Report Type: Spontaneous
  Country: US (occurrence: US)
  Receive Date: 20211028
  Receipt Date: 20211028
  Transmission Date: 20220303
  Serious: No
  Sender: FDA-Public Use
  Company Number: None

PATIENT
  Age: 61 Year
  Sex: Female

DRUGS (2)
  1. HUMIRA [Suspect]
     Active Substance: ADALIMUMAB
     Indication: Rheumatoid arthritis
     Dosage: ???OTHER FREQUENCY : UD
     Route: 058
     Dates: start: 202101
  2. RASUVO [Suspect]
     Active Substance: METHOTREXATE SODIUM
     Indication: Rheumatoid arthritis
     Dosage: ?          OTHER DOSE:12.5 ML (0/25ML);????OTHER FREQUENCY : UD
     Route: 058
     Dates: start: 202006

REACTIONS (1)
  - Nasopharyngitis [None]
